FAERS Safety Report 14495478 (Version 1)
Quarter: 2018Q1

REPORT INFORMATION
  Report Type: Spontaneous
  Country: US (occurrence: US)
  Receive Date: 20180206
  Receipt Date: 20180206
  Transmission Date: 20180509
  Serious: No
  Sender: FDA-Public Use
  Company Number: US-SMITH AND NEPHEW, INC-2017SMT00425

PATIENT
  Age: 54 Year
  Sex: Male
  Weight: 112.2 kg

DRUGS (4)
  1. LANTUS [Concomitant]
     Active Substance: INSULIN GLARGINE
     Dosage: 50 U, 1X/DAY
  2. DOXYCYCLINE. [Suspect]
     Active Substance: DOXYCYCLINE
     Dosage: UNK
     Route: 048
     Dates: start: 201705
  3. OXYCODONE [Concomitant]
     Active Substance: OXYCODONE
     Indication: PAIN
     Dosage: UNK, AS NEEDED
  4. REGRANEX [Suspect]
     Active Substance: BECAPLERMIN
     Indication: WOUND
     Dosage: UNK, EVERY 48 HOURS
     Route: 061
     Dates: start: 201705

REACTIONS (2)
  - Gastroenteritis viral [Recovering/Resolving]
  - Inappropriate schedule of drug administration [Not Recovered/Not Resolved]

NARRATIVE: CASE EVENT DATE: 201705
